FAERS Safety Report 24349343 (Version 1)
Quarter: 2024Q3

REPORT INFORMATION
  Report Type: Report from Study
  Country: US (occurrence: US)
  Receive Date: 20240923
  Receipt Date: 20240923
  Transmission Date: 20241016
  Serious: Yes (Other)
  Sender: AMGEN
  Company Number: US-AMGEN-USASL2024187214

PATIENT
  Age: 72 Year
  Sex: Female
  Weight: 61.3 kg

DRUGS (10)
  1. PROLIA [Suspect]
     Active Substance: DENOSUMAB
     Indication: Osteoporosis
     Dosage: 60 MILLIGRAM PER MILLILITRE
     Route: 065
     Dates: start: 20220105
  2. CALCIUM CARBONATE [Concomitant]
     Active Substance: CALCIUM CARBONATE
     Dosage: 500 MILLIGRAM, QD
     Route: 048
  3. ATROVENT [Concomitant]
     Active Substance: IPRATROPIUM BROMIDE
     Dosage: 0.03 PERCENT, 2 SPRAYS IN TO EACH NOSTRIL BID
     Dates: start: 20240327
  4. THERA-M [Concomitant]
     Dosage: 9 MG IRON-400 MCG, QD
  5. REQUIP [Concomitant]
     Active Substance: ROPINIROLE HYDROCHLORIDE
     Dosage: 1 MILLIGRAM, 3 TABLETS QD
     Route: 048
     Dates: start: 20240715
  6. VALTREX [Concomitant]
     Active Substance: VALACYCLOVIR HYDROCHLORIDE
     Dosage: 500 MILLIGRAM, QD
  7. AMBIEN [Concomitant]
     Active Substance: ZOLPIDEM TARTRATE
     Indication: Sleep disorder
     Dosage: 5 MILLIGRAM, QD
     Dates: start: 20240724
  8. RECLAST [Concomitant]
     Active Substance: ZOLEDRONIC ACID
     Dosage: 5 MILLIGRAM/100 ML, Q6MO
     Route: 042
  9. VITAMIN D [Concomitant]
     Active Substance: VITAMIN D NOS
  10. CALCIUM CITRATE [Concomitant]
     Active Substance: CALCIUM CITRATE
     Dosage: UNK UNK, BID

REACTIONS (9)
  - Colonic abscess [Unknown]
  - Diverticulitis [Unknown]
  - Appendicitis [Unknown]
  - Insomnia [Unknown]
  - Gastrooesophageal reflux disease [Unknown]
  - Restless legs syndrome [Unknown]
  - Foot deformity [Unknown]
  - Vitamin D deficiency [Unknown]
  - Herpes simplex [Unknown]
